FAERS Safety Report 17726609 (Version 1)
Quarter: 2020Q2

REPORT INFORMATION
  Report Type: Report from Study
  Country: CA (occurrence: CA)
  Receive Date: 20200430
  Receipt Date: 20200430
  Transmission Date: 20200714
  Serious: Yes (Death)
  Sender: FDA-Public Use
  Company Number: CA-ROCHE-2446746

PATIENT
  Age: 50 Year
  Sex: Female

DRUGS (4)
  1. VALGANCICLOVIR. [Suspect]
     Active Substance: VALGANCICLOVIR
     Indication: ANTIVIRAL PROPHYLAXIS
     Route: 065
  2. FOSCARNET [Suspect]
     Active Substance: FOSCARNET
     Indication: ANTIVIRAL PROPHYLAXIS
     Route: 065
  3. GANCICLOVIR. [Suspect]
     Active Substance: GANCICLOVIR
     Indication: ANTIVIRAL PROPHYLAXIS
     Route: 042
  4. LEFLUNOMIDE. [Suspect]
     Active Substance: LEFLUNOMIDE
     Indication: ANTIVIRAL PROPHYLAXIS
     Route: 065

REACTIONS (2)
  - Cytomegalovirus viraemia [Fatal]
  - Drug resistance [Fatal]
